FAERS Safety Report 8031829 (Version 2)
Quarter: 2013Q4

REPORT INFORMATION
  Report Type: Spontaneous
  Country: US (occurrence: US)
  Receive Date: 20110712
  Receipt Date: 20131106
  Transmission Date: 20140711
  Serious: Yes (Other)
  Sender: FDA-Public Use
  Company Number: US-ASTRAZENECA-2011SE40507

PATIENT
  Age: 60 Year
  Sex: Female
  Weight: 105.2 kg

DRUGS (11)
  1. NEXIUM [Suspect]
     Route: 048
  2. TOPROL XL [Suspect]
     Indication: HYPERTENSION
     Route: 048
  3. TOPROL XL [Suspect]
     Indication: HYPERTENSION
     Route: 048
  4. TOPROL XL [Suspect]
     Indication: HYPERTENSION
     Route: 048
     Dates: start: 201310
  5. ARIMIDEX [Suspect]
     Indication: BREAST CANCER FEMALE
     Route: 048
     Dates: start: 2011
  6. CHEMO DRUGS [Suspect]
     Indication: BREAST CANCER FEMALE
     Route: 042
  7. UNSPECIFIED MEDICATION [Suspect]
     Route: 065
  8. METFORMIN [Concomitant]
     Indication: DIABETES MELLITUS
     Route: 048
  9. INSULIN [Concomitant]
     Indication: DIABETES MELLITUS
     Route: 058
  10. GLYBURIDE [Concomitant]
     Indication: DIABETES MELLITUS
     Dosage: 30 UNITS
     Route: 048
  11. SO MANY OTHERS [Concomitant]

REACTIONS (8)
  - Neoplasm malignant [Unknown]
  - Breast cancer [Unknown]
  - Skin disorder [Recovered/Resolved]
  - Nervousness [Recovered/Resolved]
  - Blood pressure inadequately controlled [Not Recovered/Not Resolved]
  - Drug hypersensitivity [Unknown]
  - Skeletal injury [Not Recovered/Not Resolved]
  - Drug dose omission [Not Recovered/Not Resolved]
